FAERS Safety Report 11419922 (Version 1)
Quarter: 2015Q3

REPORT INFORMATION
  Report Type: Spontaneous
  Country: US (occurrence: US)
  Receive Date: 20150826
  Receipt Date: 20150826
  Transmission Date: 20151125
  Serious: Yes (Hospitalization)
  Sender: FDA-Public Use
  Company Number: US-PFIZER INC-2015279406

PATIENT
  Age: 2 Year
  Sex: Male
  Weight: 15 kg

DRUGS (1)
  1. VIAGRA [Suspect]
     Active Substance: SILDENAFIL CITRATE
     Dosage: 75 MG, UNK
     Route: 048

REACTIONS (8)
  - Diarrhoea [Recovered/Resolved]
  - Rhonchi [Recovered/Resolved]
  - Penile pain [Recovered/Resolved]
  - Accidental exposure to product by child [Recovered/Resolved]
  - Penile swelling [Recovered/Resolved]
  - Blood pressure decreased [Recovered/Resolved]
  - Flushing [Recovered/Resolved]
  - Penis disorder [Recovered/Resolved]
